FAERS Safety Report 5738730-1 (Version None)
Quarter: 2008Q2

REPORT INFORMATION
  Report Type: 
  Country: None (occurrence: None)
  Receive Date: 20080513
  Receipt Date: 20080513
  Transmission Date: 20081010
  Serious: No
  Sender: FDA-Public Use
  Company Number: None

PATIENT
  Age: 37 Year
  Sex: Male
  Weight: 113.4 kg

DRUGS (2)
  1. VARENICLINE [Suspect]
     Indication: DEPRESSION
     Dosage: 1 MG BID PO
     Route: 048
     Dates: start: 20080128, end: 20080205
  2. VARENICLINE [Suspect]
     Indication: HALLUCINATION, AUDITORY
     Dosage: 1 MG BID PO
     Route: 048
     Dates: start: 20080128, end: 20080205

REACTIONS (3)
  - CONDITION AGGRAVATED [None]
  - DEPRESSION [None]
  - HALLUCINATION, AUDITORY [None]
